FAERS Safety Report 5341333-4 (Version None)
Quarter: 2007Q2

REPORT INFORMATION
  Report Type: 
  Country: None (occurrence: None)
  Receive Date: 20070530
  Receipt Date: 20070523
  Transmission Date: 20071010
  Serious: Yes (Death, Hospitalization)
  Sender: FDA-Public Use
  Company Number: 2007SP001965

PATIENT
  Age: 36 Year
  Sex: Female
  Weight: 37.195 kg

DRUGS (2)
  1. LUNESTA [Suspect]
     Dosage: 2 MG; ORAL
     Route: 048
     Dates: start: 20070301, end: 20070501
  2. OTHER CHEMOTHRERAPEUTICS [Concomitant]

REACTIONS (4)
  - NEUTROPENIA [None]
  - PYREXIA [None]
  - RENAL FAILURE [None]
  - SUICIDAL IDEATION [None]
